FAERS Safety Report 8256522-9 (Version None)
Quarter: 2012Q2

REPORT INFORMATION
  Report Type: 
  Country: None (occurrence: None)
  Receive Date: 20120403
  Receipt Date: 20120326
  Transmission Date: 20120825
  Serious: Yes (Other)
  Sender: FDA-Public Use
  Company Number: US-ASTRAZENECA-2010SE09231

PATIENT
  Age: 61 Year
  Sex: Female
  Weight: 79.4 kg

DRUGS (6)
  1. SEROQUEL [Suspect]
     Indication: BIPOLAR I DISORDER
     Route: 048
  2. SEROQUEL [Suspect]
     Indication: SLEEP DISORDER
     Route: 048
  3. ARIMIDEX [Suspect]
     Route: 048
     Dates: start: 20100312
  4. DESIPRAMINE HCL [Concomitant]
     Indication: DEPRESSION
  5. HYDROCODONE [Concomitant]
     Indication: RESTLESS LEGS SYNDROME
  6. NEXIUM [Suspect]
     Route: 048
     Dates: start: 20050101

REACTIONS (11)
  - GASTROOESOPHAGEAL REFLUX DISEASE [None]
  - FALL [None]
  - POST-TRAUMATIC STRESS DISORDER [None]
  - INSOMNIA [None]
  - SPINAL FRACTURE [None]
  - HOT FLUSH [None]
  - DRUG DOSE OMISSION [None]
  - RESTLESS LEGS SYNDROME [None]
  - DIZZINESS [None]
  - NEOPLASM MALIGNANT [None]
  - FEELING ABNORMAL [None]
